FAERS Safety Report 5147942-X (Version None)
Quarter: 2006Q4

REPORT INFORMATION
  Report Type: 
  Country: None (occurrence: None)
  Receive Date: 20061110
  Receipt Date: 20061006
  Transmission Date: 20070319
  Serious: Yes (Death)
  Sender: FDA-Public Use
  Company Number: JP-BAYER-200611106BYL

PATIENT
  Sex: Female

DRUGS (1)
  1. CIPROFLOXACIN [Suspect]
     Indication: INFECTION PROPHYLAXIS

REACTIONS (1)
  - OBSTETRICAL PULMONARY EMBOLISM [None]
